FAERS Safety Report 9873297 (Version 3)
Quarter: 2016Q1

REPORT INFORMATION
  Report Type: Other
  Country: US (occurrence: US)
  Receive Date: 20140206
  Receipt Date: 20160217
  Transmission Date: 20160526
  Serious: Yes (Hospitalization)
  Sender: FDA-Public Use
  Company Number: US-ACORDA-ACO_101377_2014

PATIENT
  Age: 57 Year
  Sex: Female
  Weight: 74.38 kg

DRUGS (11)
  1. VESICARE [Concomitant]
     Active Substance: SOLIFENACIN SUCCINATE
     Indication: PRODUCT USED FOR UNKNOWN INDICATION
     Dosage: 10 MG, UNK
  2. VITAMIN D [Concomitant]
     Active Substance: CHOLECALCIFEROL
     Indication: MULTIPLE SCLEROSIS
     Dosage: 2000 IU, QD
     Route: 048
  3. TECFIDERA [Suspect]
     Active Substance: DIMETHYL FUMARATE
     Indication: MULTIPLE SCLEROSIS
     Dosage: 240 MG, BID
     Route: 048
  4. BACLOFEN. [Concomitant]
     Active Substance: BACLOFEN
     Indication: PRODUCT USED FOR UNKNOWN INDICATION
     Dosage: UNK
     Route: 065
  5. AMPYRA [Suspect]
     Active Substance: DALFAMPRIDINE
     Indication: MULTIPLE SCLEROSIS
     Dosage: 10 MG, Q 12 HRS
     Route: 048
     Dates: start: 20111116
  6. AMPYRA [Suspect]
     Active Substance: DALFAMPRIDINE
     Indication: MOBILITY DECREASED
  7. SENOKOT [Concomitant]
     Active Substance: SENNOSIDES
     Indication: PRODUCT USED FOR UNKNOWN INDICATION
     Dosage: 8.6 MG, BID
     Route: 048
  8. AVONEX [Concomitant]
     Active Substance: INTERFERON BETA-1A
     Indication: MULTIPLE SCLEROSIS
     Dosage: 30 ?G, WEEKLY
     Route: 030
  9. TYLENOL [Concomitant]
     Active Substance: ACETAMINOPHEN
     Indication: PRODUCT USED FOR UNKNOWN INDICATION
     Dosage: UNK
     Route: 065
  10. MULTIVITAMIN [Concomitant]
     Active Substance: VITAMINS
     Indication: PRODUCT USED FOR UNKNOWN INDICATION
     Dosage: 1 TABLET, QD
     Route: 048
  11. TYSABRI [Concomitant]
     Active Substance: NATALIZUMAB
     Indication: PRODUCT USED FOR UNKNOWN INDICATION
     Dosage: 300 MG/ 15 MG UNK

REACTIONS (31)
  - Bladder operation [Recovering/Resolving]
  - Intestinal cyst [Unknown]
  - Catheter placement [Recovering/Resolving]
  - Culture urine positive [Recovered/Resolved]
  - Fall [Unknown]
  - Flatulence [Recovering/Resolving]
  - Pollakiuria [Recovered/Resolved]
  - Abdominal pain [Unknown]
  - Troponin increased [Recovered/Resolved]
  - Vulvovaginal candidiasis [Unknown]
  - Vulvovaginal discomfort [Recovering/Resolving]
  - Insomnia [Recovering/Resolving]
  - Micturition urgency [Not Recovered/Not Resolved]
  - Abdominal pain upper [Unknown]
  - Tremor [Not Recovered/Not Resolved]
  - Muscle spasms [Recovering/Resolving]
  - Constipation [Unknown]
  - Urinary tract infection [Unknown]
  - Culture urine positive [Recovered/Resolved]
  - Klebsiella test positive [Recovered/Resolved]
  - Vulvovaginal burning sensation [Recovering/Resolving]
  - Abdominal discomfort [Recovering/Resolving]
  - Pain [Recovering/Resolving]
  - Gastroenteritis viral [Recovered/Resolved]
  - Chest pain [Unknown]
  - Bladder spasm [Unknown]
  - Back pain [Unknown]
  - Dizziness [Recovering/Resolving]
  - Culture urine positive [Unknown]
  - Cholelithiasis [Unknown]
  - Oedema [Unknown]

NARRATIVE: CASE EVENT DATE: 20111120
